FAERS Safety Report 5101796-6 (Version None)
Quarter: 2006Q3

REPORT INFORMATION
  Report Type: 
  Country: None (occurrence: None)
  Receive Date: 20060731
  Receipt Date: 20060531
  Transmission Date: 20061208
  Serious: No
  Sender: FDA-Public Use
  Company Number: 2006PV014785

PATIENT
  Age: 38 Year
  Sex: Female
  Weight: 153.3158 kg

DRUGS (7)
  1. BYETTA [Suspect]
     Indication: DIABETES MELLITUS NON-INSULIN-DEPENDENT
     Dosage: 5 MCG;BID;SC
     Route: 058
     Dates: start: 20060505
  2. ACTOPLUS MET [Concomitant]
  3. AVANDIA [Concomitant]
  4. STARLIX [Concomitant]
  5. LIPITOR [Concomitant]
  6. TRICOR [Concomitant]
  7. WELLBUTRIN [Concomitant]

REACTIONS (4)
  - INJECTION SITE BRUISING [None]
  - INJECTION SITE PAIN [None]
  - INJECTION SITE RASH [None]
  - WEIGHT DECREASED [None]
